FAERS Safety Report 8492784-0 (Version None)
Quarter: 2012Q3

REPORT INFORMATION
  Report Type: 
  Country: None (occurrence: None)
  Receive Date: 20120706
  Receipt Date: 20120703
  Transmission Date: 20120928
  Serious: Yes (Death)
  Sender: FDA-Public Use
  Company Number: US-JNJFOC-20120701746

PATIENT
  Sex: Male
  Weight: 79.5 kg

DRUGS (2)
  1. ZYTIGA [Suspect]
     Indication: PROSTATE CANCER
     Route: 048
     Dates: start: 20120122, end: 20120310
  2. RELISTOR [Concomitant]
     Indication: CONSTIPATION
     Dates: start: 20120304

REACTIONS (5)
  - DIARRHOEA [None]
  - ASTHENIA [None]
  - OXYGEN SATURATION DECREASED [None]
  - DEATH [None]
  - HYPOTENSION [None]
